FAERS Safety Report 14137622 (Version 1)
Quarter: 2017Q4

REPORT INFORMATION
  Report Type: Spontaneous
  Country: AU (occurrence: AU)
  Receive Date: 20171027
  Receipt Date: 20171027
  Transmission Date: 20180321
  Serious: Yes (Life-Threatening, Hospitalization, Other)
  Sender: FDA-Public Use
  Company Number: AU-GLENMARK PHARMACEUTICALS-2017GMK029326

PATIENT
  Age: 13 Year
  Sex: Female

DRUGS (3)
  1. HYDROXYCHLOROQUINE [Interacting]
     Active Substance: HYDROXYCHLOROQUINE
     Indication: EPIGLOTTITIS
     Dosage: 400 MG, UNK
     Route: 065
     Dates: start: 20170318, end: 20170325
  2. PREDNISOLONE. [Concomitant]
     Active Substance: PREDNISOLONE
     Indication: EPIGLOTTITIS
     Dosage: UNK
     Route: 048
     Dates: start: 20170216
  3. OMEPRAZOLE. [Suspect]
     Active Substance: OMEPRAZOLE
     Indication: EPIGLOTTITIS
     Dosage: UNK
     Route: 065
     Dates: start: 2017

REACTIONS (2)
  - Toxic epidermal necrolysis [Recovered/Resolved]
  - Drug interaction [Recovered/Resolved]

NARRATIVE: CASE EVENT DATE: 2017
